FAERS Safety Report 13113849 (Version 1)
Quarter: 2017Q1

REPORT INFORMATION
  Report Type: Spontaneous
  Country: US (occurrence: US)
  Receive Date: 20170113
  Receipt Date: 20170113
  Transmission Date: 20170428
  Serious: No
  Sender: FDA-Public Use
  Company Number: US-BEH-2017077031

PATIENT
  Age: 21 Year
  Sex: Female

DRUGS (2)
  1. RIASTAP [Suspect]
     Active Substance: FIBRINOGEN HUMAN
     Indication: COAGULOPATHY
     Dosage: 2300 MG, PRN
     Route: 042
     Dates: start: 20150527
  2. RIASTAP [Suspect]
     Active Substance: FIBRINOGEN HUMAN
     Dosage: UNK
     Route: 042
     Dates: start: 20170112, end: 20170112

REACTIONS (4)
  - Injection site irritation [Unknown]
  - Muscle strain [Unknown]
  - Injection site erythema [Unknown]
  - Injection site pruritus [Unknown]
